FAERS Safety Report 5271768-X (Version None)
Quarter: 2007Q1

REPORT INFORMATION
  Report Type: 
  Country: None (occurrence: None)
  Receive Date: 20070316
  Receipt Date: 20070228
  Transmission Date: 20070707
  Serious: Yes (Hospitalization)
  Sender: FDA-Public Use
  Company Number: 238036

PATIENT
  Age: 67 Year
  Sex: Male
  Weight: 80.7 kg

DRUGS (9)
  1. AVASTIN [Suspect]
     Indication: COLON CANCER
     Dosage: 578 MG, Q3W, INTRAVENOUS
     Route: 042
     Dates: start: 20070115
  2. CAPECITABINE (CAPECITABINE) [Suspect]
     Indication: COLON CANCER
     Dosage: 2, ORAL
     Route: 048
     Dates: start: 20070115
  3. OXALIPLATIN [Suspect]
     Indication: COLON CANCER
     Dosage: 255 MG, Q3W, INTRAVENOUS
     Route: 042
     Dates: start: 20070115
  4. IRBESARTAN [Concomitant]
  5. VALPROATE SODIUM [Concomitant]
  6. NEXIUM [Concomitant]
  7. CONCOMITANT DRUG (GENERIC COMPONENT(S) [Concomitant]
  8. VANCOMYCIN HYDROCHLORIDE [Concomitant]
  9. TIMENTIN [Concomitant]

REACTIONS (3)
  - BACTERIA BLOOD IDENTIFIED [None]
  - CHILLS [None]
  - DEVICE RELATED INFECTION [None]
